FAERS Safety Report 7639234-1 (Version None)
Quarter: 2011Q3

REPORT INFORMATION
  Report Type: 
  Country: None (occurrence: None)
  Receive Date: 20110727
  Receipt Date: 20110719
  Transmission Date: 20111222
  Serious: Yes (Other)
  Sender: FDA-Public Use
  Company Number: US-JNJFOC-20110509281

PATIENT
  Sex: Female
  Weight: 86.18 kg

DRUGS (14)
  1. FENTANYL-100 [Suspect]
     Indication: FIBROMYALGIA
     Route: 062
     Dates: start: 20110101
  2. FENTANYL-100 [Suspect]
     Indication: ARTHRALGIA
     Route: 062
     Dates: start: 20110101
  3. FENTANYL-100 [Suspect]
     Indication: FIBROMYALGIA
     Route: 062
     Dates: start: 20100601, end: 20110101
  4. ZOLPIDEM [Concomitant]
     Indication: SLEEP DISORDER
     Dosage: 10 MG TABLET AT BEDTIME
     Route: 048
  5. FENTANYL CITRATE [Suspect]
     Indication: ARTHRALGIA
     Route: 062
     Dates: start: 20110101, end: 20110101
  6. OXYBUTYNIN [Concomitant]
     Indication: URINARY TRACT DISORDER
     Route: 048
  7. LISINOPRIL [Concomitant]
     Indication: HYPERTENSION
     Dosage: 20/12.5 TABLETS/2 TABLETS TWICE DAILY
     Route: 048
  8. FENTANYL-100 [Suspect]
     Indication: ARTHRALGIA
     Route: 062
     Dates: start: 20100601, end: 20110101
  9. THEOPHYLLINE [Concomitant]
     Indication: ASTHMA
     Route: 048
  10. FENTANYL CITRATE [Suspect]
     Indication: FIBROMYALGIA
     Route: 062
     Dates: start: 20110101, end: 20110101
  11. HYDROCODONE BITARTRATE [Suspect]
     Indication: BREAKTHROUGH PAIN
     Dosage: 1/2 TABLET AS NEEDED
     Route: 048
     Dates: start: 20110401
  12. BUSPAR [Concomitant]
     Indication: PANIC ATTACK
     Route: 048
  13. CYMBALTA [Concomitant]
     Indication: DEPRESSION
     Route: 048
  14. SULINDAC [Concomitant]
     Indication: ANTIINFLAMMATORY THERAPY
     Route: 048

REACTIONS (6)
  - CONSTIPATION [None]
  - PNEUMONIA [None]
  - ASTHMA [None]
  - INAPPROPRIATE SCHEDULE OF DRUG ADMINISTRATION [None]
  - THERAPEUTIC RESPONSE DECREASED [None]
  - PAIN [None]
